FAERS Safety Report 7849520-8 (Version None)
Quarter: 2011Q4

REPORT INFORMATION
  Report Type: 
  Country: None (occurrence: None)
  Receive Date: 20111026
  Receipt Date: 20111014
  Transmission Date: 20120403
  Serious: No
  Sender: FDA-Public Use
  Company Number: US-JNJFOC-20111008442

PATIENT
  Sex: Female
  Weight: 72.58 kg

DRUGS (9)
  1. FLEXERIL [Suspect]
     Indication: PRODUCT USED FOR UNKNOWN INDICATION
     Route: 048
     Dates: start: 20010101
  2. OS-CAL D [Concomitant]
     Route: 048
  3. ROCALTROL [Concomitant]
     Route: 048
     Dates: start: 19990101
  4. ROXICODONE [Concomitant]
     Indication: PAIN
     Route: 048
     Dates: start: 20110101
  5. DURAGESIC-100 [Suspect]
     Indication: ARTHRALGIA
     Route: 062
     Dates: start: 20010101, end: 20010101
  6. DURAGESIC-100 [Suspect]
     Route: 062
  7. SYNTHROID [Concomitant]
     Indication: HYPOTHYROIDISM
     Route: 048
     Dates: start: 19990101
  8. CYMBALTA [Concomitant]
     Indication: RHEUMATOID ARTHRITIS
     Route: 048
     Dates: start: 20110201
  9. ZOLOFT [Concomitant]
     Indication: DEPRESSION
     Route: 048
     Dates: start: 20110201

REACTIONS (6)
  - PAIN [None]
  - INCORRECT DRUG ADMINISTRATION DURATION [None]
  - HYPERHIDROSIS [None]
  - PRODUCT QUALITY ISSUE [None]
  - MALAISE [None]
  - WRONG TECHNIQUE IN DRUG USAGE PROCESS [None]
